FAERS Safety Report 25841796 (Version 3)
Quarter: 2025Q4

REPORT INFORMATION
  Report Type: Spontaneous
  Country: EU (occurrence: EU)
  Receive Date: 20250924
  Receipt Date: 20251021
  Transmission Date: 20260117
  Serious: Yes (Hospitalization, Other)
  Sender: NOVO NORDISK
  Company Number: EU-NOVOPROD-1522732

PATIENT
  Age: 63 Year
  Sex: Male
  Weight: 150 kg

DRUGS (8)
  1. OZEMPIC [Suspect]
     Active Substance: SEMAGLUTIDE
     Indication: Type 2 diabetes mellitus
     Dosage: 0.25 MG
  2. OZEMPIC [Suspect]
     Active Substance: SEMAGLUTIDE
     Dosage: START DATE: SUMMER
     Dates: start: 2024
  3. OZEMPIC [Suspect]
     Active Substance: SEMAGLUTIDE
     Dosage: 0.5 MG(DOSE REDUCED FROM 1 MG)
     Route: 058
  4. OZEMPIC [Suspect]
     Active Substance: SEMAGLUTIDE
     Indication: Type 2 diabetes mellitus
     Dosage: 0.5 MG
     Route: 058
     Dates: start: 20230224, end: 20230727
  5. METOPROLOL [Concomitant]
     Active Substance: METOPROLOL
     Indication: Hypertension
     Dosage: UNK (1-0-0)
     Route: 048
  6. ALLOPURINOL [Concomitant]
     Active Substance: ALLOPURINOL
     Indication: Gout
     Dosage: 100 MG, QD(1-0-0)
     Route: 048
  7. DAPAGLIFLOZIN [Concomitant]
     Active Substance: DAPAGLIFLOZIN
     Indication: Renal failure
     Dosage: 10 MG, QD(1-0-0)
  8. HYDROMORPHONE [Concomitant]
     Active Substance: HYDROMORPHONE
     Indication: Chronic idiopathic pain syndrome
     Dosage: 24 MG, TID (SINCE JANUARY)

REACTIONS (3)
  - Syncope [Recovered/Resolved]
  - Fall [Recovered/Resolved]
  - Dizziness [Recovered/Resolved]

NARRATIVE: CASE EVENT DATE: 20230301
